FAERS Safety Report 23983670 (Version 1)
Quarter: 2024Q2

REPORT INFORMATION
  Report Type: Spontaneous
  Country: RU (occurrence: RU)
  Receive Date: 20240618
  Receipt Date: 20240618
  Transmission Date: 20240716
  Serious: Yes (Hospitalization)
  Sender: FDA-Public Use
  Company Number: RU-STRIDES ARCOLAB LIMITED-2024SP006898

PATIENT
  Age: 66 Year
  Sex: Female

DRUGS (3)
  1. PROPAFENONE [Suspect]
     Active Substance: PROPAFENONE
     Indication: Arrhythmia prophylaxis
     Dosage: UNK
     Route: 065
  2. PROPRANOLOL HYDROCHLORIDE [Suspect]
     Active Substance: PROPRANOLOL HYDROCHLORIDE
     Indication: Arrhythmia prophylaxis
     Dosage: UNK
     Route: 065
  3. BISOPROLOL [Suspect]
     Active Substance: BISOPROLOL\BISOPROLOL FUMARATE
     Indication: Arrhythmia prophylaxis
     Dosage: UNK
     Route: 065

REACTIONS (1)
  - Treatment failure [Unknown]
